FAERS Safety Report 19887209 (Version 2)
Quarter: 2022Q1

REPORT INFORMATION
  Report Type: Spontaneous
  Country: DK (occurrence: DK)
  Receive Date: 20210928
  Receipt Date: 20220103
  Transmission Date: 20220424
  Serious: Yes (Hospitalization)
  Sender: FDA-Public Use
  Company Number: DK-DKMA-ADR 25835037

PATIENT
  Age: 37 Year
  Sex: Female
  Weight: 61 kg

DRUGS (33)
  1. AVONEX [Suspect]
     Active Substance: INTERFERON BETA-1A
     Indication: Multiple sclerosis
     Dosage: STRENGTH: 30 MICROGRAM /0.5 ML
     Route: 030
     Dates: start: 20201006, end: 20210210
  2. AVONEX [Suspect]
     Active Substance: INTERFERON BETA-1A
  3. AVONEX [Suspect]
     Active Substance: INTERFERON BETA-1A
  4. AVONEX [Suspect]
     Active Substance: INTERFERON BETA-1A
  5. AVONEX [Suspect]
     Active Substance: INTERFERON BETA-1A
  6. AVONEX [Suspect]
     Active Substance: INTERFERON BETA-1A
  7. AVONEX [Suspect]
     Active Substance: INTERFERON BETA-1A
  8. AVONEX [Suspect]
     Active Substance: INTERFERON BETA-1A
  9. AVONEX [Suspect]
     Active Substance: INTERFERON BETA-1A
  10. AVONEX [Suspect]
     Active Substance: INTERFERON BETA-1A
  11. AVONEX [Suspect]
     Active Substance: INTERFERON BETA-1A
  12. AVONEX [Suspect]
     Active Substance: INTERFERON BETA-1A
  13. AVONEX [Suspect]
     Active Substance: INTERFERON BETA-1A
  14. COMIRNATY [Suspect]
     Active Substance: TOZINAMERAN
     Indication: COVID-19 immunisation
     Route: 030
     Dates: start: 20210723, end: 20210723
  15. COMIRNATY [Suspect]
     Active Substance: TOZINAMERAN
     Route: 030
     Dates: start: 20210817, end: 20210817
  16. DITEKIBOOSTER [Suspect]
     Active Substance: DIPHTHERIA AND TETANUS TOXOIDS AND ACELLULAR PERTUSSIS VACCINE ADSORBED
     Indication: Immunisation
     Route: 065
     Dates: start: 20210809, end: 20210809
  17. ACETAMINOPHEN [Concomitant]
     Active Substance: ACETAMINOPHEN
     Indication: Pain
     Dosage: STRENGTH: 500 MG
     Route: 048
     Dates: start: 20200902
  18. MIRABEGRON [Concomitant]
     Active Substance: MIRABEGRON
     Indication: Incontinence
     Dosage: STRENGTH: 50 MG
     Route: 048
     Dates: start: 20170815
  19. CHOLECALCIFEROL [Concomitant]
     Active Substance: CHOLECALCIFEROL
     Indication: Vitamin D deficiency
     Dosage: STRENGTH: 35 MICORGRAM
     Route: 048
     Dates: start: 20190520
  20. BAKLOFEN ^2CARE4^ [Concomitant]
     Indication: Muscle spasms
     Dosage: STRENGTH: 10 MG
     Route: 048
     Dates: start: 20201006
  21. BAKLOFEN ^2CARE4^ [Concomitant]
  22. BAKLOFEN ^2CARE4^ [Concomitant]
  23. BAKLOFEN ^2CARE4^ [Concomitant]
  24. BAKLOFEN ^2CARE4^ [Concomitant]
  25. BAKLOFEN ^2CARE4^ [Concomitant]
  26. BAKLOFEN ^2CARE4^ [Concomitant]
  27. BAKLOFEN ^2CARE4^ [Concomitant]
  28. BAKLOFEN ^2CARE4^ [Concomitant]
  29. BAKLOFEN ^2CARE4^ [Concomitant]
  30. BAKLOFEN ^2CARE4^ [Concomitant]
  31. BAKLOFEN ^2CARE4^ [Concomitant]
  32. BAKLOFEN ^2CARE4^ [Concomitant]
  33. MOVICOL [Concomitant]
     Active Substance: POLYETHYLENE GLYCOL 3350\POTASSIUM CHLORIDE\SODIUM BICARBONATE\SODIUM CHLORIDE
     Indication: Constipation
     Route: 048
     Dates: start: 20190520

REACTIONS (2)
  - Foetal death [Not Recovered/Not Resolved]
  - Maternal exposure during pregnancy [Recovered/Resolved]

NARRATIVE: CASE EVENT DATE: 20210820
